FAERS Safety Report 7382358-7 (Version None)
Quarter: 2011Q1

REPORT INFORMATION
  Report Type: 
  Country: None (occurrence: None)
  Receive Date: 20110329
  Receipt Date: 20110301
  Transmission Date: 20110831
  Serious: Yes (Hospitalization, Other)
  Sender: FDA-Public Use
  Company Number: US-BAYER-201038150NA

PATIENT
  Sex: Female
  Weight: 63.492 kg

DRUGS (10)
  1. MACROBID [Concomitant]
     Indication: URINARY TRACT INFECTION
     Dosage: UNK
     Dates: start: 20040405
  2. CLEOCIN [Concomitant]
     Indication: VAGINAL INFECTION
  3. MACROBID [Concomitant]
     Indication: VAGINAL INFECTION
  4. YASMIN [Suspect]
     Dosage: UNK
     Dates: start: 20030801
  5. YASMIN [Suspect]
     Indication: PRODUCT USED FOR UNKNOWN INDICATION
     Dosage: UNK UNK, QD
     Route: 048
     Dates: start: 20050201, end: 20090401
  6. ANTIVERT [Concomitant]
  7. BACTRIM DS [Concomitant]
     Indication: URINARY TRACT INFECTION
     Dosage: UNK
     Dates: start: 20060417
  8. UNCODEABLE ^UNCLASSIFIABLE^ [Concomitant]
     Dosage: UNK
  9. LEVAQUIN [Concomitant]
     Indication: URINARY TRACT INFECTION
     Dosage: UNK
     Dates: start: 20040504
  10. CLEOCIN [Concomitant]
     Indication: URINARY TRACT INFECTION
     Dosage: UNK
     Dates: start: 20040405

REACTIONS (4)
  - CHOLECYSTITIS CHRONIC [None]
  - CHOLESTEROSIS [None]
  - VERTIGO [None]
  - GALLBLADDER INJURY [None]
